FAERS Safety Report 8076404-5 (Version None)
Quarter: 2012Q1

REPORT INFORMATION
  Report Type: 
  Country: None (occurrence: None)
  Receive Date: 20120127
  Receipt Date: 20120127
  Transmission Date: 20120608
  Serious: No
  Sender: FDA-Public Use
  Company Number: None

PATIENT
  Age: 59 Year
  Sex: Female
  Weight: 68.038 kg

DRUGS (2)
  1. OXYCODONE HCL [Suspect]
     Indication: PROCEDURAL PAIN
     Dosage: 2 TABS
     Route: 048
     Dates: start: 20120119, end: 20120125
  2. OXYCODONE HCL [Suspect]
     Indication: NEOPLASM MALIGNANT
     Dosage: 2 TABS
     Route: 048
     Dates: start: 20120119, end: 20120125

REACTIONS (3)
  - INCORRECT DOSE ADMINISTERED [None]
  - DRUG INEFFECTIVE [None]
  - PRODUCT FORMULATION ISSUE [None]
